FAERS Safety Report 16842261 (Version 1)
Quarter: 2019Q3

REPORT INFORMATION
  Report Type: Spontaneous
  Country: CA (occurrence: CA)
  Receive Date: 20190924
  Receipt Date: 20190924
  Transmission Date: 20191005
  Serious: Yes (Hospitalization)
  Sender: FDA-Public Use
  Company Number: CA-TEVA-2019-CA-1113109

PATIENT
  Age: 57 Year
  Sex: Female

DRUGS (4)
  1. B6-NIACINAMIDE TAB [Concomitant]
  2. VENLAFAXINE HYDROCHLORIDE. [Suspect]
     Active Substance: VENLAFAXINE HYDROCHLORIDE
     Indication: MAJOR DEPRESSION
     Dosage: 1 DOSAGE FORMS DAILY;
     Route: 048
  3. ABILIFY [Concomitant]
     Active Substance: ARIPIPRAZOLE
  4. TRAZODONE [Concomitant]
     Active Substance: TRAZODONE HYDROCHLORIDE

REACTIONS (3)
  - Loss of personal independence in daily activities [Recovering/Resolving]
  - Depression [Recovering/Resolving]
  - Product substitution issue [Recovering/Resolving]
